FAERS Safety Report 6074637-0 (Version None)
Quarter: 2009Q1

REPORT INFORMATION
  Report Type: 
  Country: None (occurrence: None)
  Receive Date: 20090209
  Receipt Date: 20090209
  Transmission Date: 20090719
  Serious: No
  Sender: FDA-Public Use
  Company Number: None

PATIENT
  Age: 42 Year
  Sex: Male
  Weight: 74.8435 kg

DRUGS (1)
  1. ZOLOFT [Suspect]

REACTIONS (3)
  - MARITAL PROBLEM [None]
  - PREMATURE EJACULATION [None]
  - SEXUAL DYSFUNCTION [None]
